FAERS Safety Report 12216020 (Version 1)
Quarter: 2016Q1

REPORT INFORMATION
  Report Type: Spontaneous
  Country: FR (occurrence: FR)
  Receive Date: 20160329
  Receipt Date: 20160329
  Transmission Date: 20160526
  Serious: Yes (Other)
  Sender: FDA-Public Use
  Company Number: FR-ASTRAZENECA-2016SE32746

PATIENT
  Sex: Male

DRUGS (7)
  1. SOTALOL. [Concomitant]
     Active Substance: SOTALOL
  2. PREVISCAN [Concomitant]
     Active Substance: FLUINDIONE
  3. ALDOMET [Concomitant]
     Active Substance: METHYLDOPA
  4. FUROSEMIDE. [Concomitant]
     Active Substance: FUROSEMIDE
  5. HYTACAND [Suspect]
     Active Substance: CANDESARTAN CILEXETIL\HYDROCHLOROTHIAZIDE
     Dosage: 8 MG + 12.5 MG 2 TABLETS AT MORNING FOR 6 YEARS
     Route: 048
  6. HYTACAND [Suspect]
     Active Substance: CANDESARTAN CILEXETIL\HYDROCHLOROTHIAZIDE
     Dosage: (NON AZ PRODUCT) CANDESARTAN HYDROCHLOROTHIAZIDE MYLAN
     Route: 065
  7. GLICLAZIDE [Concomitant]
     Active Substance: GLICLAZIDE

REACTIONS (5)
  - Lip swelling [Unknown]
  - Rash [Unknown]
  - Skin exfoliation [Unknown]
  - Swelling face [Unknown]
  - Muscle spasms [Unknown]
